FAERS Safety Report 6368695-3 (Version None)
Quarter: 2009Q3

REPORT INFORMATION
  Report Type: 
  Country: None (occurrence: None)
  Receive Date: 20090917
  Receipt Date: 20090917
  Transmission Date: 20100115
  Serious: Yes (Other)
  Sender: FDA-Public Use
  Company Number: None

PATIENT
  Age: 38 Year
  Sex: Female
  Weight: 68.4932 kg

DRUGS (1)
  1. NUCYNTA 50 MG [Suspect]
     Indication: COMPLEX REGIONAL PAIN SYNDROME
     Dosage: 50 MG THREE TIMES/DAY PO
     Route: 048
     Dates: start: 20090701, end: 20090907

REACTIONS (2)
  - DECREASED ACTIVITY [None]
  - DYSPNOEA [None]
